FAERS Safety Report 6272337-5 (Version None)
Quarter: 2009Q3

REPORT INFORMATION
  Report Type: 
  Country: None (occurrence: None)
  Receive Date: 20090717
  Receipt Date: 20090709
  Transmission Date: 20100115
  Serious: Yes (Other)
  Sender: FDA-Public Use
  Company Number: FR-ABBOTT-09P-056-0584381-00

PATIENT
  Sex: Male

DRUGS (1)
  1. DEPAKENE [Suspect]
     Indication: MYOCLONIC EPILEPSY
     Route: 065
     Dates: start: 19940101, end: 20090301

REACTIONS (2)
  - AZOOSPERMIA [None]
  - INFERTILITY MALE [None]
